FAERS Safety Report 26045120 (Version 1)
Quarter: 2025Q4

REPORT INFORMATION
  Report Type: Spontaneous
  Country: US (occurrence: US)
  Receive Date: 20251114
  Receipt Date: 20251114
  Transmission Date: 20260118
  Serious: No
  Sender: ALVOGEN
  Company Number: US-ALVOGEN-2025096314

PATIENT
  Sex: Female

DRUGS (1)
  1. TERIPARATIDE [Suspect]
     Active Substance: TERIPARATIDE
     Indication: Osteoporosis
     Dosage: EXPIRY DATE: UU-SEP-2025?STRENGTH- 250MCG/ML
     Route: 058
     Dates: start: 202501

REACTIONS (7)
  - Injection site haemorrhage [Recovered/Resolved]
  - Device delivery system issue [Unknown]
  - Device malfunction [Unknown]
  - Device defective [Unknown]
  - Product contamination with body fluid [Unknown]
  - Drug dose omission by device [Unknown]
  - Product use issue [Unknown]

NARRATIVE: CASE EVENT DATE: 20250207
